FAERS Safety Report 6984627-9 (Version None)
Quarter: 2010Q3

REPORT INFORMATION
  Report Type: 
  Country: None (occurrence: None)
  Receive Date: 20100914
  Receipt Date: 20100914
  Transmission Date: 20110219
  Serious: No
  Sender: FDA-Public Use
  Company Number: None

PATIENT
  Age: 47 Year
  Sex: Male
  Weight: 78.0187 kg

DRUGS (9)
  1. CHLORPROMAZINE [Suspect]
     Dosage: 300MG QID PO
     Route: 048
  2. BENZTROPINE MESYLATE [Concomitant]
  3. OMEPRAZOLE [Concomitant]
  4. TAMSULOSIN HCL [Concomitant]
  5. GEODON [Concomitant]
  6. LOXAPINE [Concomitant]
  7. MULTI-VITAMIN [Concomitant]
  8. TMC [Concomitant]
  9. MOM [Concomitant]

REACTIONS (3)
  - FOREIGN BODY [None]
  - ORTHOSTATIC HYPOTENSION [None]
  - VOMITING [None]
